FAERS Safety Report 9281497 (Version 2)
Quarter: 2013Q3

REPORT INFORMATION
  Report Type: Spontaneous
  Country: US (occurrence: US)
  Receive Date: 20130509
  Receipt Date: 20130823
  Transmission Date: 20140515
  Serious: No
  Sender: FDA-Public Use
  Company Number: US-PFIZER INC-2013143581

PATIENT
  Age: 64 Year
  Sex: Female
  Weight: 51.25 kg

DRUGS (5)
  1. ATORVASTATIN CALCIUM [Suspect]
     Indication: HYPERTENSION
     Dosage: 10 MG
  2. HYDROCHLOROTHIAZIDE [Interacting]
     Indication: HYPERTENSION
     Dosage: 25 MG, UNK
  3. LOSARTAN POTASSIUM [Interacting]
     Indication: HYPERTENSION
     Dosage: 100 MG, UNK
  4. CENTRUM SILVER WOMEN^S 50+ [Interacting]
     Indication: VITAMIN SUPPLEMENTATION
     Dosage: 1 DF, DAILY
     Dates: start: 2013, end: 201304
  5. ASPIRIN ^BAYER^ [Concomitant]
     Dosage: UNK, DAILY

REACTIONS (2)
  - Drug interaction [Unknown]
  - Rash generalised [Recovering/Resolving]
